FAERS Safety Report 13000452 (Version 1)
Quarter: 2016Q4

REPORT INFORMATION
  Report Type: Spontaneous
  Country: US (occurrence: US)
  Receive Date: 20161206
  Receipt Date: 20161206
  Transmission Date: 20170207
  Serious: No
  Sender: FDA-Public Use
  Company Number: US-NATCO PHARMA LIMITED-1060447

PATIENT

DRUGS (1)
  1. RIZATRIPTAN BENZOATE ORALLY DISINTEGRATING TABLETS, 5 MG AND 10 MG [Suspect]
     Active Substance: RIZATRIPTAN BENZOATE
     Indication: MIGRAINE
     Route: 048

REACTIONS (1)
  - Dyspepsia [Unknown]
